FAERS Safety Report 4947530-1 (Version None)
Quarter: 2006Q1

REPORT INFORMATION
  Report Type: 
  Country: None (occurrence: None)
  Receive Date: 20060313
  Receipt Date: 20060302
  Transmission Date: 20060701
  Serious: No
  Sender: FDA-Public Use
  Company Number: 163-20785-06020448

PATIENT
  Sex: Male

DRUGS (1)
  1. THALOMID [Suspect]
     Indication: MULTIPLE MYELOMA

REACTIONS (3)
  - DISEASE PROGRESSION [None]
  - PNEUMONIA [None]
  - RESPIRATORY FAILURE [None]
